FAERS Safety Report 16357060 (Version 2)
Quarter: 2019Q2

REPORT INFORMATION
  Report Type: Spontaneous
  Country: JP (occurrence: JP)
  Receive Date: 20190527
  Receipt Date: 20190531
  Transmission Date: 20190711
  Serious: Yes (Other)
  Sender: FDA-Public Use
  Company Number: JP-BEH-2019102651

PATIENT
  Age: 89 Year
  Sex: Female

DRUGS (9)
  1. WARFARIN POTASSIUM [Concomitant]
     Active Substance: WARFARIN POTASSIUM
     Route: 048
  2. ASPIRIN. [Concomitant]
     Active Substance: ASPIRIN
     Route: 048
  3. VITAMIN K [Concomitant]
     Active Substance: PHYTONADIONE
     Indication: CEREBRAL INFARCTION
     Dosage: 10 MG, DAILY
     Route: 065
  4. VITAMIN K [Concomitant]
     Active Substance: PHYTONADIONE
     Indication: VASCULAR OPERATION
  5. KCENTRA [Suspect]
     Active Substance: COAGULATION FACTOR IX HUMAN\COAGULATION FACTOR VII HUMAN\COAGULATION FACTOR X HUMAN\PROTEIN C\PROTEIN S HUMAN\PROTHROMBIN
     Indication: HAEMORRHAGE
  6. VITAMIN K [Concomitant]
     Active Substance: PHYTONADIONE
     Indication: HAEMORRHAGE
  7. HEPARIN [Concomitant]
     Active Substance: HEPARIN SODIUM
     Route: 065
  8. KCENTRA [Suspect]
     Active Substance: COAGULATION FACTOR IX HUMAN\COAGULATION FACTOR VII HUMAN\COAGULATION FACTOR X HUMAN\PROTEIN C\PROTEIN S HUMAN\PROTHROMBIN
     Indication: CEREBRAL INFARCTION
     Dosage: 25 IU/ KG
     Route: 065
  9. KCENTRA [Suspect]
     Active Substance: COAGULATION FACTOR IX HUMAN\COAGULATION FACTOR VII HUMAN\COAGULATION FACTOR X HUMAN\PROTEIN C\PROTEIN S HUMAN\PROTHROMBIN
     Indication: VASCULAR OPERATION

REACTIONS (1)
  - Thrombosis [Unknown]
